FAERS Safety Report 7987775-X (Version None)
Quarter: 2011Q4

REPORT INFORMATION
  Report Type: 
  Country: None (occurrence: None)
  Receive Date: 20111216
  Receipt Date: 20101108
  Transmission Date: 20120403
  Serious: Yes (Other)
  Sender: FDA-Public Use
  Company Number: US-BRISTOL-MYERS SQUIBB COMPANY-15373707

PATIENT

DRUGS (1)
  1. ABILIFY [Suspect]
     Dosage: 1DF:15 UNIT NOS

REACTIONS (1)
  - RHABDOMYOLYSIS [None]
